FAERS Safety Report 5037893-3 (Version None)
Quarter: 2006Q2

REPORT INFORMATION
  Report Type: 
  Country: None (occurrence: None)
  Receive Date: 20060628
  Receipt Date: 20060619
  Transmission Date: 20061013
  Serious: Yes (Death, Hospitalization)
  Sender: FDA-Public Use
  Company Number: GR-ABBOTT-06P-066-0336378-00

PATIENT
  Age: 65 Year
  Sex: Female

DRUGS (9)
  1. HUMIRA [Suspect]
     Indication: RHEUMATOID ARTHRITIS
     Route: 058
     Dates: start: 20050704, end: 20060228
  2. METHOTREXATE SODIUM [Concomitant]
     Indication: RHEUMATOID ARTHRITIS
     Route: 048
     Dates: start: 20010101, end: 20060508
  3. FOLIC ACID [Concomitant]
     Indication: RHEUMATOID ARTHRITIS
     Route: 048
     Dates: start: 20010101, end: 20060508
  4. ALENDRONATE SODIUM [Concomitant]
     Indication: OSTEOPENIA
     Route: 048
     Dates: start: 20010101, end: 20060508
  5. CALCIORAL [Concomitant]
     Indication: OSTEOPENIA
     Route: 048
     Dates: start: 20010101, end: 20060508
  6. THYRORMONE [Concomitant]
     Indication: HYPOTHYROIDISM
     Route: 048
     Dates: end: 20060511
  7. METHYLPREDNISOLONE [Concomitant]
     Indication: RHEUMATOID ARTHRITIS
     Route: 048
     Dates: start: 20010101, end: 20060511
  8. PYRIDOXINE HYDROCHLORIDE INJ [Concomitant]
     Indication: RHEUMATOID ARTHRITIS
     Route: 048
     Dates: start: 20060318, end: 20060511
  9. ENOXAPARIN SODIUM [Concomitant]
     Indication: THROMBOSIS PROPHYLAXIS
     Route: 058
     Dates: start: 20060428, end: 20060511

REACTIONS (6)
  - ARTHRALGIA [None]
  - MULTI-ORGAN FAILURE [None]
  - NAUSEA [None]
  - PRODUCTIVE COUGH [None]
  - PYREXIA [None]
  - TUBERCULIN TEST POSITIVE [None]
